FAERS Safety Report 9120495 (Version 1)
Quarter: 2013Q1

REPORT INFORMATION
  Report Type: Spontaneous
  Country: US (occurrence: US)
  Receive Date: 20130226
  Receipt Date: 20130226
  Transmission Date: 20140127
  Serious: No
  Sender: FDA-Public Use
  Company Number: US-B.I. PHARMACEUTICALS,INC./RIDGEFIELD-2013-BI-04696BP

PATIENT
  Sex: Male
  Weight: 69 kg

DRUGS (5)
  1. COMBIVENT [Suspect]
     Indication: EMPHYSEMA
     Route: 055
     Dates: start: 1995, end: 201302
  2. COMBIVENT [Suspect]
     Indication: CHRONIC OBSTRUCTIVE PULMONARY DISEASE
     Route: 055
     Dates: start: 201302
  3. ALBUTEROL NEBULIZER [Concomitant]
  4. ADVAIR [Concomitant]
     Route: 055
  5. SYMBICORT [Concomitant]

REACTIONS (2)
  - Dementia [Not Recovered/Not Resolved]
  - Weight decreased [Not Recovered/Not Resolved]
